FAERS Safety Report 5068897-2 (Version None)
Quarter: 2006Q3

REPORT INFORMATION
  Report Type: 
  Country: None (occurrence: None)
  Receive Date: 20060802
  Receipt Date: 20060525
  Transmission Date: 20061208
  Serious: No
  Sender: FDA-Public Use
  Company Number: US-BRISTOL-MYERS SQUIBB COMPANY-13390786

PATIENT
  Age: 79 Year
  Sex: Female
  Weight: 68 kg

DRUGS (7)
  1. COUMADIN [Suspect]
     Indication: CARDIAC OPERATION
     Dosage: TAKEN FOR A COUPLE OF YEARS
     Dates: end: 20060101
  2. TENORMIN [Concomitant]
  3. LASIX [Concomitant]
  4. LISINOPRIL [Concomitant]
  5. PEPCID [Concomitant]
  6. LIPITOR [Concomitant]
  7. DARVOCET [Concomitant]

REACTIONS (1)
  - RASH PRURITIC [None]
